FAERS Safety Report 16737954 (Version 1)
Quarter: 2019Q3

REPORT INFORMATION
  Report Type: Spontaneous
  Country: GB (occurrence: GB)
  Receive Date: 20190824
  Receipt Date: 20190824
  Transmission Date: 20191005
  Serious: Yes (Other)
  Sender: FDA-Public Use
  Company Number: GB-TEVA-2019-GB-1096078

PATIENT
  Age: 51 Year
  Sex: Female
  Weight: 77 kg

DRUGS (2)
  1. NAPROXEN. [Suspect]
     Active Substance: NAPROXEN
     Indication: SCIATICA
     Dosage: 1000 MILLIGRAM FOR EVERY 1 DAYS
     Route: 048
     Dates: start: 20190702
  2. IBUPROFEN. [Concomitant]
     Active Substance: IBUPROFEN
     Dosage: TAKEN 2 WEEKS PRIOR TO NAPROXEN (36 HOUR WASHOUT BETWEEN)
     Route: 065

REACTIONS (3)
  - Coagulopathy [Not Recovered/Not Resolved]
  - Contusion [Unknown]
  - Gingival bleeding [Unknown]

NARRATIVE: CASE EVENT DATE: 201907
